FAERS Safety Report 9026513 (Version 1)
Quarter: 2013Q1

REPORT INFORMATION
  Report Type: Spontaneous
  Country: US (occurrence: US)
  Receive Date: 20130123
  Receipt Date: 20130123
  Transmission Date: 20140127
  Serious: No
  Sender: FDA-Public Use
  Company Number: US-009507513-1301USA004463

PATIENT
  Age: 79 Year
  Sex: Female

DRUGS (6)
  1. AZASITE [Suspect]
     Dosage: 1 DF, HS
     Route: 047
     Dates: start: 20121213
  2. AZASITE [Suspect]
     Dosage: 1 DF, HS
     Route: 047
  3. LEVOXYL [Concomitant]
  4. ZYLET [Concomitant]
  5. SIMVASTATIN TABLETS, USP [Concomitant]
     Route: 048
  6. VIGAMOX [Concomitant]

REACTIONS (1)
  - Ocular hyperaemia [Recovered/Resolved]
